FAERS Safety Report 10136894 (Version 1)
Quarter: 2014Q2

REPORT INFORMATION
  Report Type: Report from Study
  Country: US (occurrence: US)
  Receive Date: 20140429
  Receipt Date: 20140429
  Transmission Date: 20141212
  Serious: No
  Sender: FDA-Public Use
  Company Number: US-ABBVIE-14P-163-1217067-00

PATIENT
  Age: 33 Year
  Sex: Male
  Weight: 108.96 kg

DRUGS (2)
  1. ANDROGEL [Suspect]
     Indication: BLOOD TESTOSTERONE DECREASED
     Route: 061
     Dates: start: 201312
  2. CELEXA [Concomitant]
     Indication: DEPRESSION

REACTIONS (1)
  - Nipple pain [Unknown]
